FAERS Safety Report 4672398-0 (Version None)
Quarter: 2005Q2

REPORT INFORMATION
  Report Type: 
  Country: None (occurrence: None)
  Receive Date: 20050524
  Receipt Date: 20050512
  Transmission Date: 20051028
  Serious: Yes (Other)
  Sender: FDA-Public Use
  Company Number: US-JNJFOC-20050503435

PATIENT
  Sex: Female
  Weight: 104.33 kg

DRUGS (12)
  1. INFLIXIMAB [Suspect]
     Indication: RHEUMATOID ARTHRITIS
     Route: 042
     Dates: start: 20010413, end: 20030917
  2. ARAVA [Concomitant]
  3. CALCIUM GLUCONATE [Concomitant]
  4. CELEBREX [Concomitant]
  5. COZAAR [Concomitant]
  6. DOXEPIN HCL [Concomitant]
  7. ENALAPRIL MALEATE [Concomitant]
  8. ENBREL [Concomitant]
  9. FOSAMAX [Concomitant]
  10. FUROSEMIDE [Concomitant]
  11. POTASSIUM CHLORIDE [Concomitant]
  12. SYNTHROID [Concomitant]

REACTIONS (1)
  - LUNG ADENOCARCINOMA [None]
